FAERS Safety Report 5317343-X (Version None)
Quarter: 2007Q2

REPORT INFORMATION
  Report Type: 
  Country: None (occurrence: None)
  Receive Date: 20070504
  Receipt Date: 20070425
  Transmission Date: 20071010
  Serious: Yes (Other)
  Sender: FDA-Public Use
  Company Number: US-PFIZER INC-2007034260

PATIENT
  Sex: Male
  Weight: 82 kg

DRUGS (11)
  1. DETROL LA [Suspect]
     Indication: HYPERTONIC BLADDER
  2. METOPROLOL SUCCINATE [Concomitant]
  3. ISOSORBIDE [Concomitant]
  4. FOLIC ACID [Concomitant]
  5. DOXAZOSIN MESYLATE [Concomitant]
  6. QUINAPRIL HCL [Concomitant]
  7. VYTORIN [Concomitant]
  8. PREVACID [Concomitant]
  9. FINASTERIDE [Concomitant]
  10. ACETYLSALICYLIC ACID SRT [Concomitant]
  11. ZOLOFT [Concomitant]

REACTIONS (3)
  - ACCOMMODATION DISORDER [None]
  - DISORIENTATION [None]
  - VISION BLURRED [None]
